FAERS Safety Report 15158881 (Version 1)
Quarter: 2018Q3

REPORT INFORMATION
  Report Type: Spontaneous
  Country: DE (occurrence: DE)
  Receive Date: 20180718
  Receipt Date: 20180718
  Transmission Date: 20181010
  Serious: Yes (Other)
  Sender: FDA-Public Use
  Company Number: DE-PFIZER INC-2018287164

PATIENT
  Age: 95 Year
  Sex: Female
  Weight: 65 kg

DRUGS (4)
  1. PREDNISOLONE. [Suspect]
     Active Substance: PREDNISOLONE
     Dosage: 20 MG, QD
     Route: 065
  2. IXOTEN [Suspect]
     Active Substance: TROFOSFAMIDE
     Indication: LYMPHOMA
     Dosage: 50 MG, QD
     Route: 065
     Dates: start: 201804, end: 20180626
  3. IXOTEN [Suspect]
     Active Substance: TROFOSFAMIDE
     Indication: LYMPHOMA
     Dosage: UNK
     Route: 065
  4. PANTOPRAZOLE [Suspect]
     Active Substance: PANTOPRAZOLE
     Dosage: UNK
     Route: 065

REACTIONS (9)
  - Cardiac failure [Unknown]
  - Pleural effusion [Unknown]
  - Drug administration error [Unknown]
  - Fluid intake reduced [Unknown]
  - Hypersensitivity [Unknown]
  - Memory impairment [Recovered/Resolved]
  - Circulatory collapse [Unknown]
  - Cerebrovascular insufficiency [Unknown]
  - Dyspnoea [Recovered/Resolved]

NARRATIVE: CASE EVENT DATE: 201804
